FAERS Safety Report 10207961 (Version 1)
Quarter: 2014Q2

REPORT INFORMATION
  Report Type: Spontaneous
  Country: US (occurrence: US)
  Receive Date: 20140530
  Receipt Date: 20140530
  Transmission Date: 20141212
  Serious: No
  Sender: FDA-Public Use
  Company Number: US-GLAXOSMITHKLINE-A1066073A

PATIENT
  Age: 81 Year
  Sex: Female

DRUGS (4)
  1. VENTOLIN [Suspect]
     Indication: PRODUCT USED FOR UNKNOWN INDICATION
     Route: 065
  2. SYMBICORT [Concomitant]
  3. ARIXTRA [Concomitant]
  4. COUMADIN [Concomitant]

REACTIONS (2)
  - Vitreous adhesions [Unknown]
  - Eye operation [Unknown]
